FAERS Safety Report 6733817-9 (Version None)
Quarter: 2010Q2

REPORT INFORMATION
  Report Type: 
  Country: None (occurrence: None)
  Receive Date: 20100520
  Receipt Date: 20100518
  Transmission Date: 20101027
  Serious: Yes (Hospitalization)
  Sender: FDA-Public Use
  Company Number: FR-BRISTOL-MYERS SQUIBB COMPANY-15111032

PATIENT
  Age: 80 Year
  Sex: Male

DRUGS (5)
  1. COUMADIN [Suspect]
     Route: 048
  2. AVODART [Suspect]
     Indication: BENIGN PROSTATIC HYPERPLASIA
     Dosage: CAPSULE
  3. ALFUZOSIN HCL [Suspect]
     Indication: BENIGN PROSTATIC HYPERPLASIA
     Dosage: TABLET
  4. MOPRAL [Suspect]
     Route: 048
  5. RISPERDAL [Suspect]
     Dosage: TABLET

REACTIONS (2)
  - ACUTE GENERALISED EXANTHEMATOUS PUSTULOSIS [None]
  - ORCHITIS [None]
